FAERS Safety Report 21652877 (Version 1)
Quarter: 2022Q4

REPORT INFORMATION
  Report Type: Spontaneous
  Country: US (occurrence: None)
  Receive Date: 20221125
  Receipt Date: 20221125
  Transmission Date: 20230113
  Serious: Yes (Hospitalization)
  Sender: FDA-Public Use
  Company Number: None

PATIENT
  Sex: Female

DRUGS (6)
  1. ENBREL [Suspect]
     Active Substance: ETANERCEPT
     Indication: Rheumatoid arthritis
     Dosage: 50 MG/ML SUBCUTANEOUS??INJECT 1 ML (50 MG TOTAL) UNDER THE SKIN (SUBCUTANEOUS INJECTION) ONCE A WEE
     Route: 058
     Dates: start: 20160511
  2. BENAZEPRIL TAB [Concomitant]
  3. FOLIC ACID TAB [Concomitant]
  4. HYDROCHLOROT TAB [Concomitant]
  5. METHOTREXATE [Concomitant]
     Active Substance: METHOTREXATE
  6. METOPROL TAR TAB [Concomitant]

REACTIONS (2)
  - Surgery [None]
  - Therapy interrupted [None]
